FAERS Safety Report 21682389 (Version 2)
Quarter: 2022Q4

REPORT INFORMATION
  Report Type: Report from Study
  Country: BE (occurrence: None)
  Receive Date: 20221205
  Receipt Date: 20221226
  Transmission Date: 20230113
  Serious: Yes (Hospitalization)
  Sender: FDA-Public Use
  Company Number: BE-ROCHE-3222428

PATIENT
  Age: 35 Year
  Sex: Female
  Weight: 84.8 kg

DRUGS (3)
  1. ADO-TRASTUZUMAB EMTANSINE [Suspect]
     Active Substance: ADO-TRASTUZUMAB EMTANSINE
     Indication: Breast cancer
     Dosage: LAST DOSE BEFORE SAE:13/10/2022
     Route: 042
     Dates: start: 20220308, end: 20221013
  2. ATEZOLIZUMAB [Concomitant]
     Active Substance: ATEZOLIZUMAB
     Dosage: LAST DOSE BEFORE SAEL 03/11/2022
     Route: 042
     Dates: start: 20221004
  3. PHESGO [Concomitant]
     Active Substance: HYALURONIDASE-ZZXF\PERTUZUMAB\TRASTUZUMAB
     Dosage: LAST DOSE BEFORE SAE: 03/11/2022
     Route: 058
     Dates: start: 20211207

REACTIONS (1)
  - Heavy menstrual bleeding [Recovered/Resolved]

NARRATIVE: CASE EVENT DATE: 20221112
